FAERS Safety Report 5320648-X (Version None)
Quarter: 2007Q2

REPORT INFORMATION
  Report Type: 
  Country: None (occurrence: None)
  Receive Date: 20070509
  Receipt Date: 20070427
  Transmission Date: 20071010
  Serious: Yes (Other)
  Sender: FDA-Public Use
  Company Number: US-PFIZER INC-2007026923

PATIENT
  Sex: Male
  Weight: 65.8 kg

DRUGS (15)
  1. CHANTIX [Suspect]
     Indication: EX-SMOKER
     Route: 048
     Dates: start: 20070327, end: 20070327
  2. CHANTIX [Suspect]
     Indication: TOBACCO USER
  3. ZITHROMAX [Suspect]
  4. ERYTHROMYCIN [Suspect]
  5. NORVASC [Concomitant]
  6. ZETIA [Concomitant]
  7. SINGULAIR [Concomitant]
  8. SPIRIVA ^PFIZER^ [Concomitant]
  9. PROTONIX [Concomitant]
  10. MOMETASONE FUROATE [Concomitant]
  11. XOPENEX [Concomitant]
  12. FLOMAX [Concomitant]
  13. CENTRUM SILVER [Concomitant]
  14. VITAMIN CAP [Concomitant]
  15. FLONASE [Concomitant]

REACTIONS (7)
  - ARTHRALGIA [None]
  - DYSPHAGIA [None]
  - HYPERSENSITIVITY [None]
  - OEDEMA PERIPHERAL [None]
  - PAIN IN EXTREMITY [None]
  - PHARYNGEAL OEDEMA [None]
  - POOR QUALITY SLEEP [None]
